FAERS Safety Report 18101414 (Version 2)
Quarter: 2020Q4

REPORT INFORMATION
  Report Type: Spontaneous
  Country: FI (occurrence: FI)
  Receive Date: 20200801
  Receipt Date: 20201010
  Transmission Date: 20210113
  Serious: Yes (Other)
  Sender: FDA-Public Use
  Company Number: NVSC2020FI200705

PATIENT
  Age: 77 Year
  Sex: Female

DRUGS (11)
  1. AZTREONAM. [Suspect]
     Active Substance: AZTREONAM
     Indication: PRODUCT USED FOR UNKNOWN INDICATION
     Dosage: UNK
     Route: 065
     Dates: start: 2020
  2. AVELOX [Concomitant]
     Active Substance: MOXIFLOXACIN HYDROCHLORIDE
     Indication: PRODUCT USED FOR UNKNOWN INDICATION
     Dosage: 400 MG, QD
     Route: 065
     Dates: start: 20200410, end: 20200419
  3. TOBI PODHALER [Suspect]
     Active Substance: TOBRAMYCIN
     Indication: PNEUMONIA
     Dosage: 4X4 TWICW A DAY
     Dates: start: 20200610
  4. NYSTATIN. [Concomitant]
     Active Substance: NYSTATIN
     Indication: PRODUCT USED FOR UNKNOWN INDICATION
     Dosage: 1 MILLIGRAM, 4 TIMES A DAY FOR A MONTH
     Route: 065
     Dates: start: 20190425
  5. CIPROFLOXACIN. [Concomitant]
     Active Substance: CIPROFLOXACIN
     Indication: PRODUCT USED FOR UNKNOWN INDICATION
     Dosage: 500 MG, QD (250 MILLIGRAM, BID FOR 14 DAYS)
     Route: 065
     Dates: start: 20200430
  6. DOXIMED [Concomitant]
     Active Substance: DOXYCYCLINE
     Indication: PRODUCT USED FOR UNKNOWN INDICATION
     Dosage: 150 MG, QD
     Route: 065
     Dates: start: 20200131
  7. TOBI PODHALER [Suspect]
     Active Substance: TOBRAMYCIN
     Indication: PSEUDOMONAS INFECTION
     Dosage: 4 DF, BID (,INHALED TWICE A DAY FOR 28 DAYS, THEN A 28-DAY BREAK)
     Dates: start: 20190425
  8. TOBI PODHALER [Suspect]
     Active Substance: TOBRAMYCIN
     Indication: PNEUMONIA
     Dosage: 4 WEEKS EVERY MORNING AND EVERY EVENING, THEN 4 THEN WEEKS BREAK AND NEXT 4 WEEKS EVERY MORNING
     Dates: start: 20200604
  9. TOBI PODHALER [Suspect]
     Active Substance: TOBRAMYCIN
     Dosage: UNK
     Route: 055
     Dates: start: 2020, end: 20200708
  10. TOBI PODHALER [Suspect]
     Active Substance: TOBRAMYCIN
     Dosage: 1 DF, BID
     Dates: start: 20200807
  11. AMIKACIN. [Suspect]
     Active Substance: AMIKACIN
     Indication: PRODUCT USED FOR UNKNOWN INDICATION
     Dosage: UNK
     Route: 065
     Dates: start: 2019

REACTIONS (10)
  - Lung disorder [Unknown]
  - Sputum discoloured [Unknown]
  - Haemoptysis [Unknown]
  - Cough [Unknown]
  - Sputum abnormal [Unknown]
  - Drug resistance [Unknown]
  - Sputum increased [Unknown]
  - Purulent discharge [Unknown]
  - Product use issue [Unknown]
  - Disease recurrence [Unknown]

NARRATIVE: CASE EVENT DATE: 2020
